FAERS Safety Report 10773996 (Version 1)
Quarter: 2015Q1

REPORT INFORMATION
  Report Type: Other
  Country: US (occurrence: US)
  Receive Date: 20150208
  Receipt Date: 20150208
  Transmission Date: 20150721
  Serious: No
  Sender: FDA-Public Use
  Company Number: US-ACORDA-ACO_107988_2014

PATIENT
  Sex: Male
  Weight: 90.7 kg

DRUGS (1)
  1. AMPYRA [Suspect]
     Active Substance: DALFAMPRIDINE
     Indication: MULTIPLE SCLEROSIS
     Dosage: 10 MG, BID
     Route: 048

REACTIONS (5)
  - Panic disorder [Unknown]
  - Gait disturbance [Unknown]
  - Speech disorder [Unknown]
  - Anxiety [Unknown]
  - Balance disorder [Unknown]
